FAERS Safety Report 7754179-4 (Version None)
Quarter: 2011Q3

REPORT INFORMATION
  Report Type: 
  Country: None (occurrence: None)
  Receive Date: 20110913
  Receipt Date: 20110829
  Transmission Date: 20111222
  Serious: Yes (Other)
  Sender: FDA-Public Use
  Company Number: 2011P1008602

PATIENT
  Age: 45 Year
  Sex: Female
  Weight: 73.4827 kg

DRUGS (19)
  1. JANUVIA [Concomitant]
  2. DICYCLOMINE [Concomitant]
  3. MILK OF MAGNESIA TAB [Concomitant]
  4. LISINOPRIL [Concomitant]
  5. ORTH-TRICYCLEN [Concomitant]
  6. HUMULIN R [Concomitant]
  7. XANAX [Concomitant]
  8. FENTANYL [Suspect]
     Indication: PAIN
     Dosage: Q3D;TDER
     Route: 062
  9. PRILOSEC [Concomitant]
  10. CIPROFLOXACIN [Concomitant]
  11. GLUCOPHAGE [Concomitant]
  12. PROMETHAZINE [Concomitant]
  13. LYRICA [Concomitant]
  14. VALTREX [Concomitant]
  15. HUMULIN N [Concomitant]
  16. FENTANYL [Suspect]
     Indication: PAIN
     Dosage: Q3D;TDER
     Route: 062
  17. FENTANYL-75 [Suspect]
     Indication: PAIN
     Dosage: Q3D;TDER
     Route: 062
  18. ENABLEX [Concomitant]
  19. DIFLUCAN [Concomitant]

REACTIONS (4)
  - SKIN DISORDER [None]
  - VOMITING [None]
  - PRODUCT ADHESION ISSUE [None]
  - WEIGHT DECREASED [None]
